FAERS Safety Report 23920497 (Version 1)
Quarter: 2024Q2

REPORT INFORMATION
  Report Type: Spontaneous
  Country: LT (occurrence: LT)
  Receive Date: 20240530
  Receipt Date: 20240530
  Transmission Date: 20240716
  Serious: Yes (Hospitalization, Other)
  Sender: FDA-Public Use
  Company Number: LT-BRISTOL-MYERS SQUIBB COMPANY-2024-086144

PATIENT
  Age: 76 Year
  Sex: Female

DRUGS (2)
  1. ELIQUIS [Suspect]
     Active Substance: APIXABAN
     Indication: Cerebrovascular accident prophylaxis
  2. PERINDOPRIL [Concomitant]
     Active Substance: PERINDOPRIL
     Indication: Hypertension

REACTIONS (3)
  - Cerebrovascular accident [Recovered/Resolved]
  - Gastrointestinal haemorrhage [Recovered/Resolved]
  - Gastrointestinal ulcer [Recovered/Resolved]

NARRATIVE: CASE EVENT DATE: 20240101
